FAERS Safety Report 5441846-0 (Version None)
Quarter: 2007Q3

REPORT INFORMATION
  Report Type: 
  Country: None (occurrence: None)
  Receive Date: 20070830
  Receipt Date: 20070830
  Transmission Date: 20080115
  Serious: Yes (Other)
  Sender: FDA-Public Use
  Company Number: None

PATIENT
  Age: 34 Year
  Weight: 56.6996 kg

DRUGS (1)
  1. PROTONIX [Suspect]
     Indication: GASTROOESOPHAGEAL REFLUX DISEASE
     Dosage: PO
     Route: 048
     Dates: start: 20040810, end: 20041001

REACTIONS (3)
  - NAUSEA [None]
  - OPTIC NEURITIS [None]
  - WEIGHT DECREASED [None]
